FAERS Safety Report 14535717 (Version 2)
Quarter: 2018Q1

REPORT INFORMATION
  Report Type: Spontaneous
  Country: US (occurrence: US)
  Receive Date: 20180215
  Receipt Date: 20180223
  Transmission Date: 20180509
  Serious: Yes (Other)
  Sender: FDA-Public Use
  Company Number: US-AUROBINDO-AUR-APL-2018-005925

PATIENT
  Sex: Female

DRUGS (1)
  1. ZOLEDRONIC ACID [Suspect]
     Active Substance: ZOLEDRONIC ACID
     Indication: TOOTH RESORPTION
     Dosage: LONGER THAN 2 YEARS. ()
     Route: 065

REACTIONS (2)
  - Osteonecrosis [Unknown]
  - Dental restoration failure [Unknown]
